FAERS Safety Report 6059038-3 (Version None)
Quarter: 2009Q1

REPORT INFORMATION
  Report Type: 
  Country: None (occurrence: None)
  Receive Date: 20090130
  Receipt Date: 20090119
  Transmission Date: 20090719
  Serious: Yes (Hospitalization)
  Sender: FDA-Public Use
  Company Number: B0554704A

PATIENT
  Age: 56 Year
  Sex: Male

DRUGS (9)
  1. DEROXAT [Suspect]
     Indication: MAJOR DEPRESSION
     Dosage: 20MG PER DAY
     Route: 048
     Dates: end: 20080828
  2. TRANXENE [Suspect]
     Dosage: 45MG PER DAY
     Route: 048
     Dates: end: 20080831
  3. EQUANIL [Suspect]
     Dosage: 250MG THREE TIMES PER DAY
     Route: 048
     Dates: end: 20080828
  4. IMOVANE [Suspect]
     Dosage: 7.5MG PER DAY
     Route: 048
     Dates: end: 20080831
  5. DETENSIEL [Concomitant]
     Dosage: 10MG PER DAY
     Route: 048
  6. KEPPRA [Concomitant]
     Dosage: 500MG THREE TIMES PER DAY
     Route: 048
  7. VIT B1 B6 [Concomitant]
     Dosage: 1TAB PER DAY
     Route: 048
  8. AMLOR [Concomitant]
     Dosage: 5MG PER DAY
     Route: 048
  9. IRBESARTAN [Concomitant]
     Dosage: 300MG PER DAY
     Route: 048

REACTIONS (6)
  - INFLAMMATION [None]
  - LEUKOCYTOSIS [None]
  - LUNG DISORDER [None]
  - OVERDOSE [None]
  - PYREXIA [None]
  - RESPIRATORY DISTRESS [None]
